FAERS Safety Report 6325663-5 (Version None)
Quarter: 2009Q3

REPORT INFORMATION
  Report Type: 
  Country: None (occurrence: None)
  Receive Date: 20090824
  Receipt Date: 20090724
  Transmission Date: 20100115
  Serious: No
  Sender: FDA-Public Use
  Company Number: US-ABBOTT-09P-163-0587408-00

PATIENT
  Sex: Male
  Weight: 94.886 kg

DRUGS (7)
  1. NIASPAN [Suspect]
     Indication: BLOOD CHOLESTEROL INCREASED
     Dates: start: 20090701
  2. VITAMINS [Concomitant]
     Indication: ROUTINE HEALTH MAINTENANCE
  3. FISH OIL [Concomitant]
     Indication: ROUTINE HEALTH MAINTENANCE
  4. LANOXIN [Concomitant]
     Indication: HEART RATE IRREGULAR
  5. ATENOLOL [Concomitant]
     Indication: HEART RATE IRREGULAR
  6. APRAZOLAM [Concomitant]
     Indication: ANXIETY
  7. PROPAFENONE HCL [Concomitant]
     Indication: HEART RATE IRREGULAR

REACTIONS (3)
  - FLUSHING [None]
  - HOT FLUSH [None]
  - INAPPROPRIATE SCHEDULE OF DRUG ADMINISTRATION [None]
